FAERS Safety Report 6723104-7 (Version None)
Quarter: 2010Q2

REPORT INFORMATION
  Report Type: 
  Country: None (occurrence: None)
  Receive Date: 20100513
  Receipt Date: 20100503
  Transmission Date: 20101027
  Serious: Yes (Other)
  Sender: FDA-Public Use
  Company Number: US-BAYER-201021379NA

PATIENT
  Sex: Female

DRUGS (1)
  1. MIRENA [Suspect]
     Indication: INTRA-UTERINE CONTRACEPTIVE DEVICE
     Route: 015
     Dates: start: 20060601, end: 20080601

REACTIONS (3)
  - AMENORRHOEA [None]
  - INFERTILITY FEMALE [None]
  - MUSCLE SPASMS [None]
